FAERS Safety Report 7418320-5 (Version None)
Quarter: 2011Q2

REPORT INFORMATION
  Report Type: 
  Country: None (occurrence: None)
  Receive Date: 20110415
  Receipt Date: 20110408
  Transmission Date: 20111010
  Serious: Yes (Hospitalization)
  Sender: FDA-Public Use
  Company Number: A0793825A

PATIENT
  Age: 59 Year
  Sex: Female

DRUGS (16)
  1. ZETIA [Concomitant]
  2. POTASSIUM [Concomitant]
  3. XANAX [Concomitant]
  4. VINCRISTINE [Concomitant]
     Indication: IDIOPATHIC THROMBOCYTOPENIC PURPURA
     Dates: start: 20090108
  5. TENORMIN [Concomitant]
  6. FOLVITE [Concomitant]
  7. PRILOSEC [Concomitant]
  8. THEO-DUR [Concomitant]
  9. VALIUM [Concomitant]
  10. PROMACTA [Suspect]
     Indication: IDIOPATHIC THROMBOCYTOPENIC PURPURA
     Dosage: 75MG PER DAY
     Route: 048
     Dates: start: 20090210, end: 20090409
  11. NORVASC [Concomitant]
  12. AMICAR [Concomitant]
  13. ACETAMINOPHEN [Concomitant]
  14. IRON SULFATETHIAMIN COMPOUND TAB [Concomitant]
  15. MYCOSTATIN [Concomitant]
  16. KEPPRA [Concomitant]

REACTIONS (13)
  - EPISTAXIS [None]
  - SPEECH DISORDER [None]
  - HEPATIC CIRRHOSIS [None]
  - BILIARY CIRRHOSIS PRIMARY [None]
  - NEUROLOGICAL SYMPTOM [None]
  - EMOTIONAL DISORDER [None]
  - HEMIPARESIS [None]
  - ENTEROCOLITIS HAEMORRHAGIC [None]
  - DRUG INEFFECTIVE [None]
  - ANTIMITOCHONDRIAL ANTIBODY POSITIVE [None]
  - HEPATIC STEATOSIS [None]
  - GINGIVAL BLEEDING [None]
  - OBESITY [None]
